FAERS Safety Report 5870234-8 (Version None)
Quarter: 2008Q3

REPORT INFORMATION
  Report Type: 
  Country: None (occurrence: None)
  Receive Date: 20080902
  Receipt Date: 20080820
  Transmission Date: 20090109
  Serious: Yes (Hospitalization)
  Sender: FDA-Public Use
  Company Number: 237947J08USA

PATIENT
  Age: 30 Year
  Sex: Female
  Weight: 53.5244 kg

DRUGS (3)
  1. REBIF [Suspect]
     Indication: MULTIPLE SCLEROSIS
     Dosage: 44 MCG, 3 IN 1 WEEKS, SUBCUTANEOUS, 44 MCG, 3 IN 1 WEEKS, SUBCUTANEOUS
     Route: 058
     Dates: start: 20050805, end: 20080801
  2. SOLU-MEDROL [Suspect]
     Indication: MULTIPLE SCLEROSIS
     Dosage: INTRAVENOUS
     Route: 042
     Dates: start: 20080701
  3. ADDERALL (OBETROL) [Concomitant]

REACTIONS (11)
  - ANOREXIA [None]
  - CONDITION AGGRAVATED [None]
  - CONSTIPATION [None]
  - DYSPAREUNIA [None]
  - FAECAL INCONTINENCE [None]
  - HYPERTONIC BLADDER [None]
  - MICTURITION URGENCY [None]
  - MULTIPLE SCLEROSIS [None]
  - OSTEONECROSIS [None]
  - PERONEAL NERVE PALSY [None]
  - URINARY INCONTINENCE [None]
